FAERS Safety Report 26048840 (Version 1)
Quarter: 2025Q4

REPORT INFORMATION
  Report Type: Report from Study
  Country: EU (occurrence: EU)
  Receive Date: 20251115
  Receipt Date: 20251115
  Transmission Date: 20260118
  Serious: Yes (Other)
  Sender: ALEXION PHARMACEUTICALS
  Company Number: EU-ASTRAZENECA-202511GLO007569DE

PATIENT
  Age: 82 Year
  Sex: Male
  Weight: 74.5 kg

DRUGS (17)
  1. DURVALUMAB [Suspect]
     Active Substance: DURVALUMAB
     Indication: Hepatocellular carcinoma
     Dosage: UNK (1500 MILLIGRAM)
     Route: 065
     Dates: start: 20250616, end: 20251021
  2. DURVALUMAB [Suspect]
     Active Substance: DURVALUMAB
     Dosage: UNK (1500 MILLIGRAM)
     Route: 065
  3. CISPLATIN [Suspect]
     Active Substance: CISPLATIN
     Indication: Hepatocellular carcinoma
     Dosage: 48 MILLIGRAM
     Route: 065
     Dates: start: 20250616, end: 20250616
  4. CISPLATIN [Suspect]
     Active Substance: CISPLATIN
     Dosage: 47 MILLIGRAM
     Route: 065
     Dates: start: 20250623, end: 20250710
  5. CISPLATIN [Suspect]
     Active Substance: CISPLATIN
     Dosage: 47.25 MILLIGRAM
     Route: 065
     Dates: start: 20250717, end: 20250717
  6. CISPLATIN [Suspect]
     Active Substance: CISPLATIN
     Dosage: 47 MILLIGRAM
     Route: 065
     Dates: start: 20250731, end: 20250731
  7. CISPLATIN [Suspect]
     Active Substance: CISPLATIN
     Dosage: 48 MILLIGRAM
     Route: 065
     Dates: start: 20250807, end: 20250829
  8. CISPLATIN [Suspect]
     Active Substance: CISPLATIN
     Dosage: 46.75 MILLIGRAM
     Route: 065
     Dates: start: 20250626, end: 20250626
  9. CISPLATIN [Suspect]
     Active Substance: CISPLATIN
     Dosage: 48.75 MILLIGRAM
     Route: 065
     Dates: start: 20250929, end: 20250929
  10. CISPLATIN [Suspect]
     Active Substance: CISPLATIN
     Dosage: 49 MILLIGRAM
     Dates: start: 20251006, end: 20251029
  11. GEMCITABINE [Suspect]
     Active Substance: GEMCITABINE
     Indication: Hepatocellular carcinoma
     Dosage: 1520 MILLIGRAM
     Route: 065
     Dates: start: 20250616, end: 20250616
  12. GEMCITABINE [Suspect]
     Active Substance: GEMCITABINE
     Dosage: 1500 MILLIGRAM
     Route: 065
     Dates: start: 20250623, end: 20250623
  13. GEMCITABINE [Suspect]
     Active Substance: GEMCITABINE
     Dosage: 1520 MILLIGRAM
     Route: 065
     Dates: start: 20250710, end: 20250731
  14. GEMCITABINE [Suspect]
     Active Substance: GEMCITABINE
     Dosage: 1536 MILLIGRAM
     Route: 065
     Dates: start: 20250807, end: 20250821
  15. GEMCITABINE [Suspect]
     Active Substance: GEMCITABINE
     Dosage: 1540 MILLIGRAM
     Route: 065
     Dates: start: 20250829, end: 20250829
  16. GEMCITABINE [Suspect]
     Active Substance: GEMCITABINE
     Dosage: 1496 MILLIGRAM
     Route: 065
     Dates: start: 20250626, end: 20250626
  17. GEMCITABINE [Suspect]
     Active Substance: GEMCITABINE
     Dosage: 1560 MILLIGRAM
     Route: 065
     Dates: start: 20250929, end: 20251029

REACTIONS (1)
  - Polyneuropathy [Not Recovered/Not Resolved]

NARRATIVE: CASE EVENT DATE: 20251006
